FAERS Safety Report 20730445 (Version 1)
Quarter: 2022Q2

REPORT INFORMATION
  Report Type: Spontaneous
  Country: US (occurrence: None)
  Receive Date: 20220419
  Receipt Date: 20220419
  Transmission Date: 20220720
  Serious: No
  Sender: FDA-Public Use
  Company Number: None

PATIENT
  Age: 44 Year
  Sex: Female
  Weight: 72 kg

DRUGS (1)
  1. VENOFER [Suspect]
     Active Substance: IRON SUCROSE
     Indication: Anaemia
     Dates: start: 20220419

REACTIONS (15)
  - Infusion related reaction [None]
  - Paraesthesia [None]
  - Peripheral swelling [None]
  - Injection site warmth [None]
  - Joint stiffness [None]
  - Arthralgia [None]
  - Limb discomfort [None]
  - Poor peripheral circulation [None]
  - Peripheral swelling [None]
  - Asthenia [None]
  - Disturbance in attention [None]
  - Dysstasia [None]
  - Hyperhidrosis [None]
  - Speech disorder [None]
  - Feeling cold [None]

NARRATIVE: CASE EVENT DATE: 20220419
